FAERS Safety Report 7258991-X (Version None)
Quarter: 2011Q1

REPORT INFORMATION
  Report Type: 
  Country: None (occurrence: None)
  Receive Date: 20110129
  Receipt Date: 20100624
  Transmission Date: 20110831
  Serious: No
  Sender: FDA-Public Use
  Company Number: US-ABBOTT-10P-163-0653174-00

PATIENT
  Age: 14 Year
  Sex: Female

DRUGS (10)
  1. VITAMIN D [Concomitant]
     Indication: PRODUCT USED FOR UNKNOWN INDICATION
  2. HUMIRA [Suspect]
     Indication: CROHN'S DISEASE
     Dates: start: 20100521
  3. ISONIAZID [Concomitant]
     Indication: TUBERCULIN TEST POSITIVE
  4. NEBULIZER [Concomitant]
     Indication: ASTHMA
  5. ZOFRAN [Concomitant]
     Indication: NAUSEA
  6. FROVA [Concomitant]
     Indication: HEADACHE
  7. SINGULAIR [Concomitant]
     Indication: ASTHMA
  8. FLEXERIL [Concomitant]
     Indication: PRODUCT USED FOR UNKNOWN INDICATION
  9. ALBUTEROL [Concomitant]
     Indication: PRODUCT USED FOR UNKNOWN INDICATION
  10. ASACOL [Concomitant]
     Indication: CROHN'S DISEASE

REACTIONS (1)
  - ALOPECIA [None]
